FAERS Safety Report 9156582 (Version 1)
Quarter: 2013Q1

REPORT INFORMATION
  Report Type: Spontaneous
  Country: US (occurrence: None)
  Receive Date: 20130308
  Receipt Date: 20130308
  Transmission Date: 20140127
  Serious: Yes (Other)
  Sender: FDA-Public Use
  Company Number: None

PATIENT
  Age: 28 Year
  Sex: Female
  Weight: 70.5 kg

DRUGS (2)
  1. MONTELUKAST SODIUM [Suspect]
     Indication: ASTHMA
     Dosage: 10 MG DAILY ORALLY
     Route: 048
     Dates: start: 20120820, end: 20130221
  2. MONTELUKAST SODIUM [Suspect]
     Indication: MULTIPLE ALLERGIES
     Dosage: 10 MG DAILY ORALLY
     Route: 048
     Dates: start: 20120820, end: 20130221

REACTIONS (3)
  - Asthma [None]
  - Product substitution issue [None]
  - Chest discomfort [None]
